FAERS Safety Report 21170738 (Version 1)
Quarter: 2022Q3

REPORT INFORMATION
  Report Type: Other
  Country: None (occurrence: US)
  Receive Date: 20220804
  Receipt Date: 20220804
  Transmission Date: 20221027
  Serious: Yes (Hospitalization, Other)
  Sender: FDA-Public Use
  Company Number: US-ASPIRO PHARMA LTD-2131516

PATIENT
  Age: 48 Year
  Sex: Male

DRUGS (3)
  1. LIDOCAINE HYDROCHLORIDE [Suspect]
     Active Substance: LIDOCAINE HYDROCHLORIDE
     Indication: Analgesic therapy
     Route: 065
  2. DROPERIDOL [Concomitant]
     Active Substance: DROPERIDOL
     Route: 065
  3. DIAZEPAM [Concomitant]
     Active Substance: DIAZEPAM
     Route: 065

REACTIONS (5)
  - Neurotoxicity [Recovering/Resolving]
  - Electrocardiogram QRS complex abnormal [Recovering/Resolving]
  - Local anaesthetic systemic toxicity [Recovering/Resolving]
  - Overdose [Recovering/Resolving]
  - Intentional product misuse [Recovering/Resolving]
